FAERS Safety Report 6059346-6 (Version None)
Quarter: 2009Q1

REPORT INFORMATION
  Report Type: 
  Country: None (occurrence: None)
  Receive Date: 20090130
  Receipt Date: 20090121
  Transmission Date: 20090719
  Serious: Yes (Death)
  Sender: FDA-Public Use
  Company Number: US-JNJFOC-20081206666

PATIENT
  Sex: Female
  Weight: 59.8 kg

DRUGS (8)
  1. INFLIXIMAB [Suspect]
     Route: 042
  2. INFLIXIMAB [Suspect]
     Route: 042
  3. INFLIXIMAB [Suspect]
     Route: 042
  4. INFLIXIMAB [Suspect]
     Route: 042
  5. INFLIXIMAB [Suspect]
     Indication: COLITIS ULCERATIVE
     Route: 042
  6. 5 ASA [Concomitant]
  7. PROBIOTICS [Concomitant]
  8. MULTIVITAMIN WITH IRON [Concomitant]

REACTIONS (3)
  - PULSE ABSENT [None]
  - ROAD TRAFFIC ACCIDENT [None]
  - UNRESPONSIVE TO STIMULI [None]
